FAERS Safety Report 4610101-0 (Version None)
Quarter: 2005Q1

REPORT INFORMATION
  Report Type: 
  Country: None (occurrence: None)
  Receive Date: 20050316
  Receipt Date: 20041207
  Transmission Date: 20050727
  Serious: Yes (Other)
  Sender: FDA-Public Use
  Company Number: US-GLAXOSMITHKLINE-A0536597A

PATIENT
  Age: 16 Year
  Sex: Female

DRUGS (2)
  1. COMPAZINE [Suspect]
     Indication: NAUSEA
     Route: 054
     Dates: start: 20041112, end: 20041113
  2. VICODIN [Concomitant]
     Indication: DRUG USE FOR UNKNOWN INDICATION

REACTIONS (1)
  - CONVULSION [None]
